FAERS Safety Report 24735322 (Version 3)
Quarter: 2025Q1

REPORT INFORMATION
  Report Type: Report from Study
  Country: US (occurrence: US)
  Receive Date: 20241215
  Receipt Date: 20250204
  Transmission Date: 20250409
  Serious: No
  Sender: SUNOVION
  Company Number: US-SUMITOMO PHARMA SWITZERLAND GMBH-2024SPA005737

PATIENT

DRUGS (1)
  1. ORGOVYX [Suspect]
     Active Substance: RELUGOLIX
     Indication: Prostate cancer
     Dosage: 120 MG, QD
     Route: 048
     Dates: start: 20241125

REACTIONS (8)
  - Pain [Unknown]
  - Sexual dysfunction [Unknown]
  - Bone pain [Unknown]
  - Diarrhoea [Unknown]
  - Hot flush [Unknown]
  - Arthralgia [Unknown]
  - Therapy interrupted [Unknown]
  - Incorrect dose administered [Unknown]
